FAERS Safety Report 10448625 (Version 2)
Quarter: 2014Q3

REPORT INFORMATION
  Report Type: Spontaneous
  Country: IL (occurrence: IL)
  Receive Date: 20140912
  Receipt Date: 20140923
  Transmission Date: 20150326
  Serious: Yes (Death)
  Sender: FDA-Public Use
  Company Number: IL-ROCHE-1461200

PATIENT
  Age: 58 Year
  Sex: Male

DRUGS (1)
  1. ACTEMRA [Suspect]
     Active Substance: TOCILIZUMAB
     Indication: SCLERODERMA
     Route: 065
     Dates: start: 201402, end: 20140630

REACTIONS (3)
  - Organ failure [Fatal]
  - Off label use [Unknown]
  - Respiratory failure [Fatal]
